FAERS Safety Report 23173430 (Version 2)
Quarter: 2023Q4

REPORT INFORMATION
  Report Type: Spontaneous
  Country: US (occurrence: US)
  Receive Date: 20231111
  Receipt Date: 20231120
  Transmission Date: 20240110
  Serious: Yes (Other)
  Sender: FDA-Public Use
  Company Number: US-UCBSA-2023053622

PATIENT
  Sex: Female

DRUGS (3)
  1. BRIVIACT [Suspect]
     Active Substance: BRIVARACETAM
     Indication: Myoclonic epilepsy
     Dosage: 50 MILLIGRAM, 2X/DAY (BID) I WAS TAKING 100 MG A DAY, 50 IN THE MORNING AND 50 AT NIGHT
     Route: 048
     Dates: start: 2016
  2. BRIVIACT [Suspect]
     Active Substance: BRIVARACETAM
     Dosage: 100 MILLIGRAM, 2X/DAY (BID) 200 MG A DAY, 100 MG IN THE MORNING AND 100 MG AT NIGHT
     Route: 048
  3. XCOPRI [Concomitant]
     Active Substance: CENOBAMATE
     Indication: Product used for unknown indication
     Dosage: UNK
     Dates: start: 2023

REACTIONS (4)
  - Seizure [Recovering/Resolving]
  - Illness [Unknown]
  - COVID-19 [Recovering/Resolving]
  - Product use in unapproved indication [Unknown]

NARRATIVE: CASE EVENT DATE: 20160101
